FAERS Safety Report 8613872 (Version 3)
Quarter: 2013Q2

REPORT INFORMATION
  Report Type: Spontaneous
  Country: US (occurrence: US)
  Receive Date: 20120614
  Receipt Date: 20130422
  Transmission Date: 20140414
  Serious: Yes (Other)
  Sender: FDA-Public Use
  Company Number: US-PFIZER INC-2012141283

PATIENT
  Age: 61 Year
  Sex: Female
  Weight: 88.44 kg

DRUGS (5)
  1. LYRICA [Suspect]
     Indication: TRIGEMINAL NEURALGIA
     Dosage: 100 MG, 2X/DAY
     Route: 048
     Dates: start: 2009
  2. LYRICA [Suspect]
     Indication: PAIN
  3. NEURONTIN [Suspect]
     Indication: PAIN
     Dosage: 300 MG, 3X/DAY
     Route: 048
     Dates: start: 2008
  4. NEURONTIN [Suspect]
     Indication: TRIGEMINAL NEURALGIA
     Dosage: UNK
     Route: 048
  5. STADOL [Concomitant]
     Indication: MIGRAINE
     Dosage: UNK, AS NEEDED
     Route: 045

REACTIONS (11)
  - Pressure of speech [Unknown]
  - Memory impairment [Unknown]
  - Breakthrough pain [Unknown]
  - Weight increased [Recovering/Resolving]
  - Fatigue [Unknown]
  - Balance disorder [Unknown]
  - Fall [Unknown]
  - Somnolence [Unknown]
  - Therapeutic response unexpected [Unknown]
  - Drug ineffective [Unknown]
  - Inappropriate schedule of drug administration [Unknown]
